FAERS Safety Report 12578710 (Version 1)
Quarter: 2016Q3

REPORT INFORMATION
  Report Type: Report from Study
  Country: US (occurrence: US)
  Receive Date: 20160721
  Receipt Date: 20160721
  Transmission Date: 20161109
  Serious: Yes (Other)
  Sender: FDA-Public Use
  Company Number: US-ROCHE-1063378

PATIENT
  Age: 38 Year
  Sex: Male
  Weight: 69.4 kg

DRUGS (6)
  1. RO 4929097 (GAMMA SECRETASE INHIBITOR) [Suspect]
     Active Substance: INVESTIGATIONAL PRODUCT
     Dosage: PLANNED
     Route: 048
     Dates: start: 20120329
  2. VISMODEGIB [Suspect]
     Active Substance: VISMODEGIB
     Dosage: DELAYED
     Route: 048
     Dates: start: 20120329
  3. RO 4929097 (GAMMA SECRETASE INHIBITOR) [Suspect]
     Active Substance: INVESTIGATIONAL PRODUCT
     Route: 048
     Dates: start: 20120529, end: 20120618
  4. RO 4929097 (GAMMA SECRETASE INHIBITOR) [Suspect]
     Active Substance: INVESTIGATIONAL PRODUCT
     Route: 048
     Dates: start: 20120417
  5. RO 4929097 (GAMMA SECRETASE INHIBITOR) [Suspect]
     Active Substance: INVESTIGATIONAL PRODUCT
     Indication: SARCOMA METASTATIC
     Route: 048
     Dates: start: 20120306
  6. VISMODEGIB [Suspect]
     Active Substance: VISMODEGIB
     Indication: SARCOMA METASTATIC
     Route: 048
     Dates: start: 20120306

REACTIONS (13)
  - Hyperglycaemia [None]
  - Alopecia [None]
  - Neutrophil count decreased [Unknown]
  - Dyspnoea [None]
  - Hyponatraemia [Recovered/Resolved]
  - Hypophagia [None]
  - Decreased appetite [None]
  - Dysgeusia [None]
  - Tumour pain [None]
  - Constipation [None]
  - Hypophosphataemia [Unknown]
  - Headache [None]
  - Aspartate aminotransferase increased [None]

NARRATIVE: CASE EVENT DATE: 20120327
